FAERS Safety Report 7668736-7 (Version None)
Quarter: 2011Q3

REPORT INFORMATION
  Report Type: 
  Country: None (occurrence: None)
  Receive Date: 20110808
  Receipt Date: 20110805
  Transmission Date: 20111222
  Serious: Yes (Death)
  Sender: FDA-Public Use
  Company Number: JP-BAYER-2010-001876

PATIENT
  Age: 65 Year
  Sex: Female
  Weight: 62 kg

DRUGS (16)
  1. MIGLITOL [Concomitant]
     Dosage: DAILY DOSE 75 MG
     Route: 048
  2. TORSEMIDE [Concomitant]
     Dosage: DAILY DOSE 8 MG
     Route: 048
  3. SORAFENIB (RAF KINASE INHIBITOR) [Suspect]
     Indication: HEPATIC NEOPLASM MALIGNANT
     Dosage: 400 MG, QD
     Route: 048
     Dates: start: 20100623, end: 20100716
  4. UREPEARL [Concomitant]
     Indication: PALMAR-PLANTAR ERYTHRODYSAESTHESIA SYNDROME
     Dosage: UNK
     Route: 061
     Dates: start: 20100621
  5. SORAFENIB (RAF KINASE INHIBITOR) [Suspect]
     Dosage: 200 MG, QD
     Route: 048
     Dates: start: 20100826, end: 20100930
  6. AMARYL [Concomitant]
     Dosage: DAILY DOSE 2 MG
     Route: 048
  7. VOLTAREN [Concomitant]
     Dosage: DAILY DOSE 25 MG
     Route: 054
  8. LOCOID [Concomitant]
     Dosage: UNK
     Route: 061
  9. SORAFENIB (RAF KINASE INHIBITOR) [Suspect]
     Dosage: 400 MG, QD
     Route: 048
     Dates: start: 20100729, end: 20100826
  10. LEVOTHYROXINE SODIUM [Concomitant]
     Dosage: DAILY DOSE 75 ?G
     Route: 048
  11. LIVACT [Concomitant]
     Dosage: DAILY DOSE 12.45 MG
     Route: 048
  12. LOSARTAN POTASSIUM [Concomitant]
     Dosage: DAILY DOSE 25 MG
     Route: 048
  13. ALDACTONE [Concomitant]
     Dosage: DAILY DOSE 25 MG
     Route: 048
  14. OMEPRAZOLE [Concomitant]
     Dosage: DAILY DOSE 20 MG
     Route: 048
  15. URSO 250 [Concomitant]
     Dosage: DAILY DOSE 600 MG
     Route: 048
  16. POSTERISAN [Concomitant]
     Route: 061

REACTIONS (13)
  - PALMAR-PLANTAR ERYTHRODYSAESTHESIA SYNDROME [None]
  - DYSPHONIA [None]
  - ANAL EROSION [None]
  - LIPASE INCREASED [None]
  - PRODUCTIVE COUGH [None]
  - HYPONATRAEMIA [None]
  - COUGH [None]
  - PROTHROMBIN LEVEL DECREASED [None]
  - MALAISE [None]
  - HEPATIC NEOPLASM MALIGNANT [None]
  - HEPATIC FUNCTION ABNORMAL [None]
  - DIARRHOEA [None]
  - BLOOD AMYLASE INCREASED [None]
